FAERS Safety Report 7709801-5 (Version None)
Quarter: 2011Q3

REPORT INFORMATION
  Report Type: 
  Country: None (occurrence: None)
  Receive Date: 20110825
  Receipt Date: 20110822
  Transmission Date: 20111222
  Serious: Yes (Death, Hospitalization)
  Sender: FDA-Public Use
  Company Number: JP-PFIZER INC-2011187547

PATIENT
  Age: 79 Year
  Sex: Female
  Weight: 43.9 kg

DRUGS (9)
  1. LASIX [Suspect]
     Dosage: 40 MG, 2X/DAY
     Dates: end: 20110728
  2. ALLOPURINOL [Suspect]
     Dosage: 100 MG, 1X/DAY
     Dates: end: 20110728
  3. WARFARIN SODIUM [Suspect]
     Dosage: 1.5 MG, 1X/DAY
     Dates: end: 20110728
  4. METOPROLOL TARTRATE [Suspect]
     Dosage: 40 MG, 2X/DAY
     Dates: end: 20110728
  5. FERROUS CITRATE [Suspect]
     Dosage: 100 MG, 2X/DAY
     Dates: start: 20091030, end: 20110728
  6. SUTENT [Suspect]
     Indication: RENAL CELL CARCINOMA
     Dosage: 25 MG, 1X/DAY
     Route: 048
     Dates: start: 20110715, end: 20110728
  7. CANDESARTAN CILEXETIL [Suspect]
     Dosage: 40 MG, 1X/DAY
     Dates: end: 20110728
  8. ISOSORBIDE MONONITRATE [Suspect]
     Dosage: 40 MG, 2X/DAY
     Dates: end: 20110728
  9. LANIRAPID [Suspect]
     Dosage: 0.05 MG, 1X/DAY
     Dates: end: 20110728

REACTIONS (3)
  - RENAL CELL CARCINOMA [None]
  - DISEASE PROGRESSION [None]
  - ALTERED STATE OF CONSCIOUSNESS [None]
